FAERS Safety Report 24456371 (Version 2)
Quarter: 2024Q4

REPORT INFORMATION
  Report Type: Report from Study
  Country: US (occurrence: US)
  Receive Date: 20241017
  Receipt Date: 20241018
  Transmission Date: 20250115
  Serious: No
  Sender: ROCHE
  Company Number: US-ROCHE-3503732

PATIENT
  Age: 41 Year
  Sex: Male

DRUGS (14)
  1. RITUXAN [Suspect]
     Active Substance: RITUXIMAB
     Indication: Granulomatosis with polyangiitis
     Route: 041
     Dates: start: 20240129
  2. RITUXAN [Suspect]
     Active Substance: RITUXIMAB
     Indication: Iridocyclitis
     Route: 042
     Dates: start: 20240129
  3. METHYLPREDNISOLONE [Concomitant]
     Active Substance: METHYLPREDNISOLONE
     Route: 042
     Dates: start: 20240129
  4. ALBUTEROL [Concomitant]
     Active Substance: ALBUTEROL
  5. CALCIUM CITRATE\VITAMIN D [Concomitant]
     Active Substance: CALCIUM CITRATE\VITAMIN D
  6. CHOLECALCIFEROL [Concomitant]
     Active Substance: CHOLECALCIFEROL
  7. CYANOCOBALAMIN [Concomitant]
     Active Substance: CYANOCOBALAMIN
  8. FAMOTIDINE [Concomitant]
     Active Substance: FAMOTIDINE
  9. CHONDROITIN SULFATE (BOVINE)\GLUCOSAMINE HYDROCHLORIDE [Concomitant]
     Active Substance: CHONDROITIN SULFATE (BOVINE)\GLUCOSAMINE HYDROCHLORIDE
     Route: 048
  10. LISINOPRIL [Concomitant]
     Active Substance: LISINOPRIL
  11. VITAMINS [Concomitant]
     Active Substance: VITAMINS
  12. PREDNISOLONE ACETATE [Concomitant]
     Active Substance: PREDNISOLONE ACETATE
  13. PREDNISONE [Concomitant]
     Active Substance: PREDNISONE
  14. SULFAMETHOXAZOLE\TRIMETHOPRIM [Concomitant]
     Active Substance: SULFAMETHOXAZOLE\TRIMETHOPRIM

REACTIONS (2)
  - Off label use [Unknown]
  - No adverse event [Unknown]
